FAERS Safety Report 4898018-8 (Version None)
Quarter: 2006Q1

REPORT INFORMATION
  Report Type: 
  Country: None (occurrence: None)
  Receive Date: 20060201
  Receipt Date: 20060123
  Transmission Date: 20060701
  Serious: Yes (Other)
  Sender: FDA-Public Use
  Company Number: AU-ROCHE-433286

PATIENT
  Age: 49 Year
  Sex: Male

DRUGS (1)
  1. DUCENE [Suspect]
     Indication: SLEEP DISORDER
     Route: 048
     Dates: start: 20041219, end: 20041225

REACTIONS (2)
  - DEPRESSION [None]
  - SUICIDAL IDEATION [None]
